FAERS Safety Report 14491730 (Version 1)
Quarter: 2018Q1

REPORT INFORMATION
  Report Type: Spontaneous
  Country: GB (occurrence: GB)
  Receive Date: 20180206
  Receipt Date: 20180206
  Transmission Date: 20180509
  Serious: Yes (Hospitalization)
  Sender: FDA-Public Use
  Company Number: GB-ABBVIE-18P-167-2247375-00

PATIENT
  Age: 49 Year
  Sex: Male

DRUGS (1)
  1. DEPAKOTE [Suspect]
     Active Substance: DIVALPROEX SODIUM
     Indication: PRODUCT USED FOR UNKNOWN INDICATION
     Dosage: 5 TABLETS/DAY (2-1-2)
     Route: 048

REACTIONS (3)
  - Product packaging issue [Unknown]
  - Mental disorder [Unknown]
  - Aggression [Unknown]

NARRATIVE: CASE EVENT DATE: 20180130
